FAERS Safety Report 10341853 (Version 3)
Quarter: 2014Q4

REPORT INFORMATION
  Report Type: Report from Study
  Country: DE (occurrence: DE)
  Receive Date: 20140725
  Receipt Date: 20141226
  Transmission Date: 20150528
  Serious: Yes (Hospitalization)
  Sender: FDA-Public Use
  Company Number: DE-ROCHE-1418404

PATIENT
  Age: 74 Year
  Sex: Female

DRUGS (4)
  1. DIPYRONE [Concomitant]
     Active Substance: DIPYRONE
     Route: 065
     Dates: start: 20130904
  2. PREGABALIN. [Concomitant]
     Active Substance: PREGABALIN
     Route: 065
     Dates: start: 20140521
  3. VEMURAFENIB [Suspect]
     Active Substance: VEMURAFENIB
     Indication: MALIGNANT MELANOMA
     Route: 048
     Dates: start: 20140521
  4. DULOXETINE [Concomitant]
     Active Substance: DULOXETINE

REACTIONS (2)
  - Cardiovascular disorder [Not Recovered/Not Resolved]
  - Headache [Recovered/Resolved]

NARRATIVE: CASE EVENT DATE: 20140521
